FAERS Safety Report 19155124 (Version 1)
Quarter: 2021Q2

REPORT INFORMATION
  Report Type: Spontaneous
  Country: US (occurrence: US)
  Receive Date: 20210420
  Receipt Date: 20210420
  Transmission Date: 20210717
  Serious: Yes (Hospitalization, Other)
  Sender: FDA-Public Use
  Company Number: US-MICRO LABS LIMITED-ML2021-01093

PATIENT
  Age: 15 Year
  Sex: Female

DRUGS (3)
  1. PREDNISONE. [Suspect]
     Active Substance: PREDNISONE
  2. CLINDAMYCIN. [Suspect]
     Active Substance: CLINDAMYCIN
     Indication: CELLULITIS
  3. PREDNISONE. [Suspect]
     Active Substance: PREDNISONE
     Indication: DYSURIA

REACTIONS (2)
  - Culture urine negative [Recovered/Resolved]
  - Cystitis bacterial [Recovered/Resolved]
